FAERS Safety Report 8086060-8 (Version None)
Quarter: 2012Q1

REPORT INFORMATION
  Report Type: 
  Country: None (occurrence: None)
  Receive Date: 20120128
  Receipt Date: 20110610
  Transmission Date: 20120608
  Serious: No
  Sender: FDA-Public Use
  Company Number: US-ABBOTT-11P-163-0731643-00

PATIENT
  Sex: Female

DRUGS (10)
  1. DETROL [Concomitant]
     Indication: BLADDER DISORDER
     Route: 048
  2. SINEMET [Concomitant]
     Indication: RESTLESS LEGS SYNDROME
     Route: 048
  3. FOLIC ACID [Concomitant]
     Indication: PRODUCT USED FOR UNKNOWN INDICATION
     Route: 048
  4. HYDROCHLOROTHIAZIDE [Concomitant]
     Indication: HYPERTENSION
     Route: 048
  5. HUMIRA [Suspect]
     Indication: PSORIATIC ARTHROPATHY
     Dates: start: 20101101
  6. CELEBREX [Concomitant]
     Indication: PAIN
     Route: 048
  7. SYNTHROID [Concomitant]
     Indication: HYPOTHYROIDISM
     Route: 048
  8. LISINOPRIL [Concomitant]
     Indication: HYPERTENSION
     Route: 048
  9. ATENOLOL [Concomitant]
     Indication: HYPERTENSION
     Route: 048
  10. METHOTREXATE [Concomitant]
     Indication: ILL-DEFINED DISORDER
     Route: 048

REACTIONS (1)
  - ABSCESS ORAL [None]
